FAERS Safety Report 4291463-3 (Version None)
Quarter: 2004Q1

REPORT INFORMATION
  Report Type: 
  Country: None (occurrence: None)
  Receive Date: 20040126
  Receipt Date: 20031022
  Transmission Date: 20041129
  Serious: No
  Sender: FDA-Public Use
  Company Number: USA031050532

PATIENT
  Age: 78 Year
  Sex: Male

DRUGS (4)
  1. FORTEO [Suspect]
     Indication: BONE DENSITY DECREASED
     Dates: start: 20030922
  2. EXTRA STRENGTH TYLENOL [Concomitant]
  3. NORVASC [Concomitant]
  4. HYTRIN [Concomitant]

REACTIONS (2)
  - BONE PAIN [None]
  - DISCOMFORT [None]
